FAERS Safety Report 9961563 (Version 3)
Quarter: 2014Q2

REPORT INFORMATION
  Report Type: Spontaneous
  Country: GB (occurrence: GB)
  Receive Date: 20140305
  Receipt Date: 20140521
  Transmission Date: 20141212
  Serious: Yes (Death, Hospitalization)
  Sender: FDA-Public Use
  Company Number: PHFR2014GB001887

PATIENT
  Age: 85 Year
  Sex: Female

DRUGS (6)
  1. CLOZARIL [Suspect]
     Dosage: UNK
     Route: 048
     Dates: start: 20070910
  2. SERTRALINE [Concomitant]
     Indication: DEPRESSION
     Dosage: 50 MG, UNK
     Route: 048
  3. RISPERIDONE [Concomitant]
     Indication: SCHIZOPHRENIA
     Dosage: 1.5 MG, UNK
     Route: 048
  4. OMEPRAZOLE [Concomitant]
     Indication: PEPTIC ULCER
     Dosage: 20 MG, UNK
     Route: 048
  5. PARACETAMOL [Concomitant]
     Indication: PAIN
     Dosage: 1 G, UNK
     Route: 048
  6. MOVICOL [Concomitant]
     Indication: CONSTIPATION
     Dosage: 1 DF, UNK
     Route: 048

REACTIONS (7)
  - Pneumonia aspiration [Fatal]
  - Lethargy [Unknown]
  - Nausea [Unknown]
  - General physical health deterioration [Unknown]
  - Asthenia [Unknown]
  - White blood cell count increased [Recovered/Resolved]
  - Neutrophil count increased [Recovered/Resolved]
